FAERS Safety Report 14166411 (Version 1)
Quarter: 2017Q4

REPORT INFORMATION
  Report Type: Spontaneous
  Country: PR (occurrence: PR)
  Receive Date: 20171106
  Receipt Date: 20171106
  Transmission Date: 20180321
  Serious: No
  Sender: FDA-Public Use
  Company Number: None

PATIENT

DRUGS (2)
  1. LINEZOLID. [Suspect]
     Active Substance: LINEZOLID
     Indication: STAPHYLOCOCCAL INFECTION
     Route: 042
     Dates: start: 20171019, end: 20171026
  2. LINEZOLID. [Suspect]
     Active Substance: LINEZOLID
     Indication: OSTEOMYELITIS
     Route: 042
     Dates: start: 20171019, end: 20171026

REACTIONS (4)
  - Pain in extremity [None]
  - Neck pain [None]
  - Discomfort [None]
  - Vomiting [None]

NARRATIVE: CASE EVENT DATE: 20171026
